FAERS Safety Report 6335492-4 (Version None)
Quarter: 2009Q3

REPORT INFORMATION
  Report Type: 
  Country: None (occurrence: None)
  Receive Date: 20090827
  Receipt Date: 20090817
  Transmission Date: 20100115
  Serious: Yes (Hospitalization)
  Sender: FDA-Public Use
  Company Number: 2009AL005451

PATIENT
  Sex: Female

DRUGS (2)
  1. IBUPROFEN [Suspect]
  2. RIVAROXABAN [Concomitant]

REACTIONS (2)
  - POST PROCEDURAL COMPLICATION [None]
  - WOUND SECRETION [None]
